FAERS Safety Report 4564255-5 (Version None)
Quarter: 2005Q1

REPORT INFORMATION
  Report Type: 
  Country: None (occurrence: None)
  Receive Date: 20050128
  Receipt Date: 20040630
  Transmission Date: 20050727
  Serious: No
  Sender: FDA-Public Use
  Company Number: US-GLAXOSMITHKLINE-A0516619A

PATIENT
  Age: 28 Year
  Sex: Female

DRUGS (2)
  1. COMBIVIR [Suspect]
     Dates: start: 20040501, end: 20040525
  2. THYROXINE [Concomitant]
     Route: 065

REACTIONS (1)
  - HYPERGLYCAEMIA [None]
